FAERS Safety Report 7086933-9 (Version None)
Quarter: 2010Q4

REPORT INFORMATION
  Report Type: 
  Country: None (occurrence: None)
  Receive Date: 20101106
  Receipt Date: 20101102
  Transmission Date: 20110411
  Serious: No
  Sender: FDA-Public Use
  Company Number: US-WYE-H17104110

PATIENT
  Sex: Male

DRUGS (1)
  1. PROTONIX [Suspect]
     Dosage: UNKNOWN
     Route: 050

REACTIONS (2)
  - DEVICE OCCLUSION [None]
  - PRODUCT SOLUBILITY ABNORMAL [None]
